FAERS Safety Report 15289388 (Version 1)
Quarter: 2018Q3

REPORT INFORMATION
  Report Type: Spontaneous
  Country: US (occurrence: US)
  Receive Date: 20180803
  Receipt Date: 20180803
  Transmission Date: 20181010
  Serious: Yes (Hospitalization, Disabling)
  Sender: FDA-Public Use
  Company Number: None

PATIENT
  Age: 21 Year
  Sex: Female
  Weight: 71.67 kg

DRUGS (2)
  1. ZANTAC [Concomitant]
     Active Substance: RANITIDINE HYDROCHLORIDE
  2. NEXPLANON [Suspect]
     Active Substance: ETONOGESTREL

REACTIONS (15)
  - Intrusive thoughts [None]
  - Abdominal pain [None]
  - Spider vein [None]
  - Pain in extremity [None]
  - Dry skin [None]
  - Complication of device removal [None]
  - Gastrooesophageal reflux disease [None]
  - Fatigue [None]
  - Rash generalised [None]
  - Abdominal distension [None]
  - Weight increased [None]
  - Embedded device [None]
  - Anxiety [None]
  - Depression [None]
  - Chest pain [None]
